FAERS Safety Report 4385094-4 (Version None)
Quarter: 2004Q2

REPORT INFORMATION
  Report Type: 
  Country: None (occurrence: None)
  Receive Date: 20040621
  Receipt Date: 20040614
  Transmission Date: 20050107
  Serious: Yes (Death)
  Sender: FDA-Public Use
  Company Number: 2004CG01130

PATIENT
  Age: 76 Year
  Sex: Male
  Weight: 65 kg

DRUGS (4)
  1. MOPRAL [Suspect]
     Dates: start: 20000101, end: 20040222
  2. LEGALON [Suspect]
     Dates: end: 20040222
  3. CIBADREX ^CIBA-GEIGY^ [Suspect]
     Dates: start: 20000101, end: 20040222
  4. FENOFIBRATE GNR [Suspect]
     Dates: end: 20040222

REACTIONS (14)
  - ASCITES [None]
  - BILIARY DILATATION [None]
  - CHOLELITHIASIS [None]
  - CREATINE PHOSPHOKINASE DECREASED [None]
  - GENERALISED OEDEMA [None]
  - MULTI-ORGAN FAILURE [None]
  - MYOGLOBIN BLOOD INCREASED [None]
  - PANCREATITIS NECROTISING [None]
  - PLEURAL EFFUSION [None]
  - RENAL FAILURE ACUTE [None]
  - RESPIRATORY DISTRESS [None]
  - SEPSIS [None]
  - SEPTIC SHOCK [None]
  - SUPERINFECTION [None]
